FAERS Safety Report 7129843-0 (Version None)
Quarter: 2010Q4

REPORT INFORMATION
  Report Type: 
  Country: None (occurrence: None)
  Receive Date: 20101130
  Receipt Date: 20101004
  Transmission Date: 20110411
  Serious: Yes (Other)
  Sender: FDA-Public Use
  Company Number: US-AMGEN-QUU407244

PATIENT

DRUGS (3)
  1. NPLATE [Suspect]
     Indication: IDIOPATHIC THROMBOCYTOPENIC PURPURA
     Dosage: 625 A?G, QWK
     Route: 058
     Dates: start: 20081029, end: 20081201
  2. CORTICOSTEROID NOS [Concomitant]
     Dosage: UNK UNK, UNK
     Dates: start: 20081004
  3. PREDNISONE [Concomitant]
     Dosage: 60 MG, QD

REACTIONS (8)
  - AORTIC ARTERIOSCLEROSIS [None]
  - ATELECTASIS [None]
  - BLOOD IRON DECREASED [None]
  - BULLOUS LUNG DISEASE [None]
  - DIVERTICULUM INTESTINAL [None]
  - DRUG INEFFECTIVE [None]
  - SPINAL OSTEOARTHRITIS [None]
  - SUBCUTANEOUS NODULE [None]
